FAERS Safety Report 4832135-3 (Version None)
Quarter: 2005Q4

REPORT INFORMATION
  Report Type: 
  Country: None (occurrence: None)
  Receive Date: 20051118
  Receipt Date: 20051028
  Transmission Date: 20060501
  Serious: Yes (Death)
  Sender: FDA-Public Use
  Company Number: JP-MERCK-0511USA00061

PATIENT
  Age: 76 Year
  Sex: Male

DRUGS (13)
  1. STROMECTOL [Suspect]
     Indication: ACARODERMATITIS
     Route: 048
     Dates: start: 20051015, end: 20051015
  2. ALLELOCK [Concomitant]
     Indication: PRURITUS
     Route: 048
  3. ACTOS [Concomitant]
     Indication: DIABETES MELLITUS
     Route: 048
  4. NOVOLIN N [Concomitant]
     Indication: DIABETES MELLITUS
     Route: 058
  5. DIGOXIN [Concomitant]
     Indication: ATRIAL FIBRILLATION
     Route: 048
     Dates: start: 20050722, end: 20051015
  6. RYTHMODAN [Concomitant]
     Indication: ATRIAL FIBRILLATION
     Route: 048
  7. GASTER [Concomitant]
     Indication: GASTRITIS
     Route: 048
     Dates: start: 20050722, end: 20051015
  8. ALESION [Concomitant]
     Indication: PRURITUS
     Route: 048
     Dates: start: 20050722, end: 20051015
  9. PLETAL [Concomitant]
     Indication: ARTERIOSCLEROSIS OBLITERANS
     Route: 048
     Dates: start: 20050722, end: 20051015
  10. EURAX [Concomitant]
     Indication: ACARODERMATITIS
     Route: 061
  11. ACHROMYCIN [Concomitant]
     Route: 061
  12. LIPLE [Concomitant]
     Indication: ARTERIOSCLEROSIS OBLITERANS
     Route: 042
  13. EPOGIN [Concomitant]
     Indication: NEPHROGENIC ANAEMIA
     Route: 042

REACTIONS (5)
  - ARRHYTHMIA [None]
  - CARDIAC FAILURE ACUTE [None]
  - LOSS OF CONSCIOUSNESS [None]
  - RESPIRATORY ARREST [None]
  - VENTRICULAR FIBRILLATION [None]
